FAERS Safety Report 13764648 (Version 1)
Quarter: 2017Q3

REPORT INFORMATION
  Report Type: Spontaneous
  Country: US (occurrence: US)
  Receive Date: 20170718
  Receipt Date: 20170718
  Transmission Date: 20171127
  Serious: No
  Sender: FDA-Public Use
  Company Number: US-BAUSCH-BL-2017-004946

PATIENT
  Sex: Female

DRUGS (1)
  1. XIFAXAN [Suspect]
     Active Substance: RIFAXIMIN
     Indication: HEPATIC FAILURE
     Route: 065

REACTIONS (5)
  - Mobility decreased [Unknown]
  - Swelling [Unknown]
  - Abdominal distension [Unknown]
  - Bowel movement irregularity [Unknown]
  - Drug intolerance [Unknown]
